FAERS Safety Report 7903479-3 (Version None)
Quarter: 2011Q4

REPORT INFORMATION
  Report Type: 
  Country: None (occurrence: None)
  Receive Date: 20111107
  Receipt Date: 20111021
  Transmission Date: 20120403
  Serious: Yes (Hospitalization, Other)
  Sender: FDA-Public Use
  Company Number: 2011MA015906

PATIENT
  Age: 30 Year
  Sex: Female

DRUGS (2)
  1. NAPROXEN [Suspect]
     Indication: ARTHRALGIA
  2. PREDNISONE TAB [Concomitant]

REACTIONS (5)
  - CHOLESTASIS [None]
  - PRURITUS [None]
  - HEPATITIS [None]
  - HEPATIC NECROSIS [None]
  - MATERNAL EXPOSURE BEFORE PREGNANCY [None]
